FAERS Safety Report 20130093 (Version 1)
Quarter: 2021Q4

REPORT INFORMATION
  Report Type: Spontaneous
  Country: DE (occurrence: DE)
  Receive Date: 20211130
  Receipt Date: 20211130
  Transmission Date: 20220303
  Serious: Yes (Other)
  Sender: FDA-Public Use
  Company Number: DE-KRKA-DE2021K13118SPO

PATIENT
  Age: 2 Year
  Sex: Female

DRUGS (3)
  1. TORSEMIDE [Suspect]
     Active Substance: TORSEMIDE
     Indication: Product used for unknown indication
     Dosage: UNK, SINGLE DOSE ON 27 OR 28-SEP-2021
     Route: 048
     Dates: start: 202109, end: 202109
  2. MOXONIDINE [Suspect]
     Active Substance: MOXONIDINE
     Indication: Product used for unknown indication
     Dosage: UNK, SINGLE DOSE ON 27 OR 28-SEP-2021
     Route: 048
     Dates: start: 202109, end: 202109
  3. CANDESARTAN CILEXETIL [Suspect]
     Active Substance: CANDESARTAN CILEXETIL
     Indication: Product used for unknown indication
     Dosage: UNK, SINGLE DOSE ON 27 OR 28-SEP-2021
     Route: 048
     Dates: start: 202109, end: 202109

REACTIONS (2)
  - Vomiting [Recovered/Resolved]
  - Accidental exposure to product by child [Unknown]

NARRATIVE: CASE EVENT DATE: 20210901
